FAERS Safety Report 8525420-5 (Version None)
Quarter: 2012Q3

REPORT INFORMATION
  Report Type: 
  Country: None (occurrence: None)
  Receive Date: 20120720
  Receipt Date: 20120716
  Transmission Date: 20120928
  Serious: Yes (Hospitalization)
  Sender: FDA-Public Use
  Company Number: PHHY2011FR58120

PATIENT
  Sex: Male

DRUGS (1)
  1. SOMATROPIN [Suspect]

REACTIONS (2)
  - MULTI-VITAMIN DEFICIENCY [None]
  - SYSTEMIC INFLAMMATORY RESPONSE SYNDROME [None]
